FAERS Safety Report 7684205-2 (Version None)
Quarter: 2011Q3

REPORT INFORMATION
  Report Type: 
  Country: None (occurrence: None)
  Receive Date: 20110815
  Receipt Date: 20110719
  Transmission Date: 20111222
  Serious: Yes (Life-Threatening)
  Sender: FDA-Public Use
  Company Number: CN-BAYER-2011-062646

PATIENT
  Age: 69 Year
  Sex: Female
  Weight: 40 kg

DRUGS (1)
  1. ULTRAVIST 150 [Suspect]
     Indication: COMPUTERISED TOMOGRAM ABDOMEN
     Dosage: 75 ML, UNK
     Dates: start: 20110718

REACTIONS (6)
  - DIZZINESS [None]
  - PULSE PRESSURE DECREASED [None]
  - HYPOTENSION [None]
  - MYDRIASIS [None]
  - CONFUSIONAL STATE [None]
  - RESPIRATORY RATE INCREASED [None]
